FAERS Safety Report 24254683 (Version 1)
Quarter: 2024Q3

REPORT INFORMATION
  Report Type: Report from Study
  Country: US (occurrence: US)
  Receive Date: 20240827
  Receipt Date: 20240827
  Transmission Date: 20241017
  Serious: Yes (Hospitalization)
  Sender: OTSUKA
  Company Number: US-OTSUKA-2024_015350

PATIENT
  Age: 28 Year
  Sex: Female
  Weight: 92.08 kg

DRUGS (6)
  1. CEDAZURIDINE\DECITABINE [Suspect]
     Active Substance: CEDAZURIDINE\DECITABINE
     Indication: Acute myeloid leukaemia
     Dosage: 1 DF (35 MG DECITABINE AND 100 MG CEDAZURIDINE) DAILY ON DAYS 1-5 OF EACH 28 DAY CYCLE
     Route: 048
     Dates: start: 202404
  2. ACYCLOVIR [Concomitant]
     Active Substance: ACYCLOVIR
     Indication: Product used for unknown indication
     Dosage: UNK
     Route: 065
  3. CIPROFLOXACIN [Concomitant]
     Active Substance: CIPROFLOXACIN
     Indication: Product used for unknown indication
     Dosage: UNK
     Route: 065
  4. FLUCONAZOLE [Concomitant]
     Active Substance: FLUCONAZOLE
     Indication: Product used for unknown indication
     Dosage: UNK
     Route: 065
  5. KEPPRA [Concomitant]
     Active Substance: LEVETIRACETAM
     Indication: Product used for unknown indication
     Dosage: UNK
     Route: 065
  6. VENCLEXTA [Concomitant]
     Active Substance: VENETOCLAX
     Indication: Product used for unknown indication
     Dosage: 200 MG, QD
     Route: 065
     Dates: start: 202401

REACTIONS (4)
  - Transfusion [Recovering/Resolving]
  - Dyspnoea [Recovering/Resolving]
  - Ear infection [Unknown]
  - Product use in unapproved indication [Unknown]

NARRATIVE: CASE EVENT DATE: 20240401
